FAERS Safety Report 13466669 (Version 1)
Quarter: 2017Q2

REPORT INFORMATION
  Report Type: Spontaneous
  Country: US (occurrence: US)
  Receive Date: 20170421
  Receipt Date: 20170421
  Transmission Date: 20170830
  Serious: No
  Sender: FDA-Public Use
  Company Number: US-TEVA-729078ACC

PATIENT
  Age: 57 Year
  Sex: Female
  Weight: 63.56 kg

DRUGS (2)
  1. IBANDONATE SODIUM TABLETS [Suspect]
     Active Substance: IBANDRONIC ACID
     Indication: MUSCULOSKELETAL DISCOMFORT
  2. IBANDONATE SODIUM TABLETS [Suspect]
     Active Substance: IBANDRONIC ACID
     Indication: OSTEOPENIA
     Dates: start: 201411

REACTIONS (4)
  - Back pain [Recovered/Resolved]
  - Influenza like illness [Recovered/Resolved]
  - Myalgia [Recovered/Resolved]
  - Dizziness [Recovered/Resolved with Sequelae]

NARRATIVE: CASE EVENT DATE: 20141101
